FAERS Safety Report 20962853 (Version 1)
Quarter: 2022Q2

REPORT INFORMATION
  Report Type: Spontaneous
  Country: BR (occurrence: BR)
  Receive Date: 20220615
  Receipt Date: 20220615
  Transmission Date: 20220720
  Serious: Yes (Other)
  Sender: FDA-Public Use
  Company Number: BR-AMERICAN REGENT INC-2022001606

PATIENT
  Sex: Female

DRUGS (1)
  1. VENOFER [Suspect]
     Active Substance: IRON SUCROSE
     Indication: Product used for unknown indication
     Dosage: 100 MG INJECTABLE SOLUTION WITH 5 AMPOULES OF 5 ML (5X5ML)
     Route: 042

REACTIONS (2)
  - Product availability issue [Unknown]
  - Therapy cessation [Unknown]
